FAERS Safety Report 7966531-2 (Version None)
Quarter: 2011Q4

REPORT INFORMATION
  Report Type: 
  Country: None (occurrence: None)
  Receive Date: 20111208
  Receipt Date: 20111129
  Transmission Date: 20120403
  Serious: Yes (Other)
  Sender: FDA-Public Use
  Company Number: AU-ASTRAZENECA-2011SE67508

PATIENT
  Age: 64 Year
  Sex: Female

DRUGS (3)
  1. ARIMIDEX [Suspect]
     Route: 048
     Dates: start: 20071201
  2. LIPITOR [Concomitant]
     Dates: end: 20110910
  3. SOLPRIN [Concomitant]
     Dosage: DAILY
     Route: 048

REACTIONS (1)
  - BLOOD CREATININE INCREASED [None]
